FAERS Safety Report 6828523-6 (Version None)
Quarter: 2010Q3

REPORT INFORMATION
  Report Type: 
  Country: None (occurrence: None)
  Receive Date: 20100709
  Receipt Date: 20070214
  Transmission Date: 20110219
  Serious: No
  Sender: FDA-Public Use
  Company Number: US-PFIZER INC-2007013073

PATIENT
  Sex: Female
  Weight: 65.77 kg

DRUGS (5)
  1. CHANTIX [Suspect]
     Dates: start: 20070201
  2. PRIMIDONE [Concomitant]
  3. LEXAPRO [Concomitant]
  4. HYDROCHLOROTHIAZIDE [Concomitant]
  5. TOPROL-XL [Concomitant]

REACTIONS (3)
  - DIARRHOEA [None]
  - DYSPEPSIA [None]
  - GASTROENTERITIS VIRAL [None]
